FAERS Safety Report 6697503-6 (Version None)
Quarter: 2010Q2

REPORT INFORMATION
  Report Type: 
  Country: None (occurrence: None)
  Receive Date: 20100422
  Receipt Date: 20100406
  Transmission Date: 20101027
  Serious: Yes (Hospitalization, Other)
  Sender: FDA-Public Use
  Company Number: 1-21556555

PATIENT
  Age: 75 Year
  Sex: Female

DRUGS (12)
  1. WARFARIN SODIUM [Suspect]
     Indication: THROMBOSIS PROPHYLAXIS
     Dosage: ONCE DAILY, ORAL
     Route: 048
     Dates: start: 20091102, end: 20100108
  2. WARFARIN SODIUM [Suspect]
     Indication: THROMBOSIS PROPHYLAXIS
     Dosage: ONCE DAILY, ORAL
     Route: 048
  3. SIMVASTATIN [Concomitant]
  4. INHIBIN [Concomitant]
  5. COLCHICINE [Concomitant]
  6. METFORMIN [Concomitant]
  7. IBUPROFEN [Concomitant]
  8. PANTOPRAZOLE [Concomitant]
  9. ATENOLOL [Concomitant]
  10. FUROSEMIDE [Concomitant]
  11. CHLORTHALIDONE [Concomitant]
  12. NITROFURANTOIN [Concomitant]

REACTIONS (15)
  - ABDOMINAL SEPSIS [None]
  - ACCIDENTAL OVERDOSE [None]
  - BLOOD BILIRUBIN INCREASED [None]
  - BLOOD CREATININE INCREASED [None]
  - BLOOD GLUCOSE INCREASED [None]
  - BLOOD LACTATE DEHYDROGENASE INCREASED [None]
  - BLOOD POTASSIUM INCREASED [None]
  - BLOOD SODIUM DECREASED [None]
  - HAEMATEMESIS [None]
  - INTERNATIONAL NORMALISED RATIO INCREASED [None]
  - INTESTINAL HAEMATOMA [None]
  - MALAISE [None]
  - PLATELET COUNT INCREASED [None]
  - PROTHROMBIN TIME PROLONGED [None]
  - WHITE BLOOD CELL COUNT INCREASED [None]
